FAERS Safety Report 7181723-0 (Version None)
Quarter: 2010Q4

REPORT INFORMATION
  Report Type: 
  Country: None (occurrence: None)
  Receive Date: 20101221
  Receipt Date: 20100429
  Transmission Date: 20110411
  Serious: Yes (Other)
  Sender: FDA-Public Use
  Company Number: US-AMGEN-KDL409376

PATIENT

DRUGS (1)
  1. ENBREL [Suspect]
     Indication: RHEUMATOID ARTHRITIS
     Dosage: 50 MG, QWK
     Route: 058
     Dates: start: 20090304, end: 20100228

REACTIONS (5)
  - ABDOMINAL PAIN [None]
  - FOOT OPERATION [None]
  - LUNG DISORDER [None]
  - PRURITUS GENERALISED [None]
  - WHITE BLOOD CELL COUNT INCREASED [None]
